FAERS Safety Report 15437464 (Version 1)
Quarter: 2018Q3

REPORT INFORMATION
  Report Type: Spontaneous
  Country: US (occurrence: US)
  Receive Date: 20180927
  Receipt Date: 20180927
  Transmission Date: 20181010
  Serious: No
  Sender: FDA-Public Use
  Company Number: US-AMGEN-USASP2017179369

PATIENT
  Age: 71 Year
  Sex: Male
  Weight: 72.56 kg

DRUGS (10)
  1. XGEVA [Suspect]
     Active Substance: DENOSUMAB
     Indication: METASTASES TO BONE
  2. SUTENT [Suspect]
     Active Substance: SUNITINIB MALATE
     Indication: PRODUCT USED FOR UNKNOWN INDICATION
     Dosage: 37.5 MG, 928 DAYS ON/14 DAYS OFF)
     Route: 065
     Dates: start: 20170503
  3. MULTIVITAMIN [Concomitant]
     Active Substance: VITAMINS
  4. PREDNISONE. [Concomitant]
     Active Substance: PREDNISONE
  5. VITAMIN D [Concomitant]
     Active Substance: CHOLECALCIFEROL
  6. XGEVA [Suspect]
     Active Substance: DENOSUMAB
     Indication: METASTASES TO LUNG
     Dosage: UNK
     Route: 065
  7. FLUDROCORTISONE [Concomitant]
     Active Substance: FLUDROCORTISONE
  8. FINASTERIDE. [Concomitant]
     Active Substance: FINASTERIDE
  9. DILANTIN [Concomitant]
     Active Substance: PHENYTOIN
     Indication: SEIZURE
  10. CALCIUM [Concomitant]
     Active Substance: CALCIUM

REACTIONS (2)
  - Malaise [Unknown]
  - Pain in jaw [Recovered/Resolved]

NARRATIVE: CASE EVENT DATE: 201705
